FAERS Safety Report 6882718-4 (Version None)
Quarter: 2010Q3

REPORT INFORMATION
  Report Type: 
  Country: None (occurrence: None)
  Receive Date: 20100729
  Receipt Date: 20100723
  Transmission Date: 20110219
  Serious: Yes (Other)
  Sender: FDA-Public Use
  Company Number: GB-TEVA-242438ISR

PATIENT
  Age: 67 Year
  Sex: Male

DRUGS (1)
  1. CARBOPLATIN [Suspect]
     Indication: NON-SMALL CELL LUNG CANCER

REACTIONS (1)
  - VENTRICULAR TACHYCARDIA [None]
